FAERS Safety Report 6899401-1 (Version None)
Quarter: 2010Q3

REPORT INFORMATION
  Report Type: 
  Country: None (occurrence: None)
  Receive Date: 20100803
  Receipt Date: 20090516
  Transmission Date: 20110219
  Serious: No
  Sender: FDA-Public Use
  Company Number: US-PFIZER INC-2009177272

PATIENT
  Sex: Male
  Weight: 74.8 kg

DRUGS (9)
  1. NEURONTIN [Suspect]
     Dosage: 150 MG, 3X/DAY
     Dates: start: 20080101
  2. LYRICA [Suspect]
     Indication: BONE METABOLISM DISORDER
     Dosage: 150 MG, 3X/DAY
     Dates: start: 20090216
  3. LYRICA [Suspect]
     Indication: PAIN
  4. PREDNISONE [Concomitant]
     Dosage: UNK
  5. BACLOFEN [Concomitant]
     Indication: MUSCLE SPASMS
     Dosage: UNK
  6. TYLENOL W/ CODEINE [Concomitant]
     Indication: PAIN
     Dosage: UNK
  7. SOMA [Concomitant]
     Indication: MUSCLE SPASMS
     Dosage: UNK
  8. AMBIEN [Concomitant]
     Dosage: UNK
  9. VITAMIN D [Concomitant]
     Dosage: UNK

REACTIONS (8)
  - DIZZINESS [None]
  - HYPERHIDROSIS [None]
  - NAUSEA [None]
  - OEDEMA PERIPHERAL [None]
  - SWELLING FACE [None]
  - TREMOR [None]
  - VITAMIN D DECREASED [None]
  - WITHDRAWAL SYNDROME [None]
